FAERS Safety Report 19041041 (Version 1)
Quarter: 2021Q1

REPORT INFORMATION
  Report Type: Spontaneous
  Country: FR (occurrence: FR)
  Receive Date: 20210323
  Receipt Date: 20210323
  Transmission Date: 20210420
  Serious: Yes (Other)
  Sender: FDA-Public Use
  Company Number: FR-BRISTOL-MYERS SQUIBB COMPANY-BMS-2021-027173

PATIENT
  Age: 79 Year
  Sex: Male
  Weight: 74 kg

DRUGS (1)
  1. OPDIVO [Suspect]
     Active Substance: NIVOLUMAB
     Indication: MALIGNANT MELANOMA
     Route: 042
     Dates: start: 20191001, end: 20210224

REACTIONS (1)
  - Squamous cell carcinoma [Unknown]

NARRATIVE: CASE EVENT DATE: 20210224
